FAERS Safety Report 9240710 (Version 1)
Quarter: 2013Q1

REPORT INFORMATION
  Report Type: Spontaneous
  Country: US (occurrence: None)
  Receive Date: 20121120
  Receipt Date: 20121120
  Transmission Date: 20140127
  Serious: No
  Sender: FDA-Public Use
  Company Number: 1000038872

PATIENT
  Age: 64 Year
  Sex: Male

DRUGS (11)
  1. VIIBRYD [Suspect]
     Indication: DEPRESSION
     Dosage: 10MG (10MG, 1 IN 1 D) ORAL
     Route: 048
     Dates: start: 201209
  2. WARFARIN (WARFARIN) [Suspect]
  3. TRAMADOL (TRAMADOL) [Concomitant]
  4. ZETIA (EZETIMIBE) [Concomitant]
  5. TRILIPIX (CHOLINE FENOFIBRATE) [Concomitant]
  6. PANTOPRAZOLE (PANTOPRAZOLE) [Concomitant]
  7. HYDROCHLOROTHIAZIDE (HYDROCHLOROTHIAZIDE) [Concomitant]
  8. FOLIC ACID (FOLIC ACID) [Concomitant]
  9. BACLOFEN (BACLOFEN) [Concomitant]
  10. ATACAND (CANDESARTAN CILEXETIL) [Concomitant]
  11. ACYCLOVIR (ACICLOVIR) (ACICLOVIR) [Concomitant]

REACTIONS (2)
  - International normalised ratio increased [None]
  - Drug interaction [None]
